FAERS Safety Report 15811077 (Version 1)
Quarter: 2019Q1

REPORT INFORMATION
  Report Type: Spontaneous
  Country: AU (occurrence: AU)
  Receive Date: 20190111
  Receipt Date: 20190111
  Transmission Date: 20190417
  Serious: Yes (Other)
  Sender: FDA-Public Use
  Company Number: AU-SUN PHARMACEUTICAL INDUSTRIES LTD-2018RR-195807

PATIENT
  Age: 42 Year
  Sex: Male

DRUGS (10)
  1. ETHAMBUTOL [Suspect]
     Active Substance: ETHAMBUTOL HYDROCHLORIDE
     Indication: MYCOBACTERIAL INFECTION
     Dosage: 1600 MILLIGRAM, DAILY
     Route: 065
  2. LINEZOLIDE [Suspect]
     Active Substance: LINEZOLID
     Indication: MYCOBACTERIAL INFECTION
     Dosage: 600 MILLIGRAM, BID
     Route: 065
  3. AMIKACIN. [Suspect]
     Active Substance: AMIKACIN
     Indication: MYCOBACTERIAL INFECTION
     Dosage: 1.5 GRAM (15 MG/KG)
     Route: 042
  4. RIFABUTIN. [Suspect]
     Active Substance: RIFABUTIN
     Indication: MYCOBACTERIAL INFECTION
     Dosage: 300 MILLIGRAM, DAILY
     Route: 048
  5. AZITHROMYCIN ANHYDROUS. [Concomitant]
     Active Substance: AZITHROMYCIN ANHYDROUS
     Indication: MYCOBACTERIAL INFECTION
     Dosage: 500 MILLIGRAM, DAILY
     Route: 065
  6. AMIKACIN. [Suspect]
     Active Substance: AMIKACIN
     Dosage: 1750 MILLIGRAM, 3/WEEK
     Route: 065
  7. RIFABUTIN. [Suspect]
     Active Substance: RIFABUTIN
     Dosage: 450 MILLIGRAM, DAILY
     Route: 065
  8. CLARITHROMYCIN. [Suspect]
     Active Substance: CLARITHROMYCIN
     Indication: MYCOBACTERIAL INFECTION
     Dosage: 500 MILLIGRAM, BID
     Route: 065
  9. ETHAMBUTOL [Suspect]
     Active Substance: ETHAMBUTOL HYDROCHLORIDE
     Dosage: 2400 MILLIGRAM, DAILY
     Route: 065
  10. CLOFAZAMINE [Concomitant]
     Active Substance: CLOFAZIMINE
     Indication: MYCOBACTERIAL INFECTION
     Dosage: 200 MILLIGRAM, DAILY
     Route: 065

REACTIONS (4)
  - Neuropathy peripheral [Recovered/Resolved]
  - Immune reconstitution inflammatory syndrome [Recovering/Resolving]
  - Drug ineffective [Unknown]
  - Kidney rupture [Recovering/Resolving]
